FAERS Safety Report 24046462 (Version 2)
Quarter: 2024Q3

REPORT INFORMATION
  Report Type: Spontaneous
  Country: US (occurrence: US)
  Receive Date: 20240703
  Receipt Date: 20240808
  Transmission Date: 20241017
  Serious: No
  Sender: SANOFI AVENTIS
  Company Number: US-SA-SAC20240627000548

PATIENT
  Sex: Female
  Weight: 93.4 kg

DRUGS (23)
  1. DUPIXENT [Suspect]
     Active Substance: DUPILUMAB
     Indication: Illness
     Dosage: 300 MG, QOW
     Route: 058
  2. VITAMIN C [Concomitant]
     Active Substance: ASCORBIC ACID
  3. VITAMIN C [Concomitant]
     Active Substance: ASCORBIC ACID
  4. VITAMINS NOS [Concomitant]
     Active Substance: VITAMINS
  5. VITAMINS NOS [Concomitant]
     Active Substance: VITAMINS
  6. ZINC [Concomitant]
     Active Substance: ZINC
  7. ZINC [Concomitant]
     Active Substance: ZINC
  8. VITAMIN D3 [Concomitant]
     Active Substance: CHOLECALCIFEROL
  9. VITAMIN D3 [Concomitant]
     Active Substance: CHOLECALCIFEROL
  10. ROSUVASTATIN CALCIUM [Concomitant]
     Active Substance: ROSUVASTATIN CALCIUM
  11. ROSUVASTATIN CALCIUM [Concomitant]
     Active Substance: ROSUVASTATIN CALCIUM
  12. ELIQUIS [Concomitant]
     Active Substance: APIXABAN
  13. ELIQUIS [Concomitant]
     Active Substance: APIXABAN
  14. SPIRONOLACTONE [Concomitant]
     Active Substance: SPIRONOLACTONE
  15. SPIRONOLACTONE [Concomitant]
     Active Substance: SPIRONOLACTONE
  16. METFORMIN [Concomitant]
     Active Substance: METFORMIN HYDROCHLORIDE
  17. METFORMIN [Concomitant]
     Active Substance: METFORMIN HYDROCHLORIDE
  18. ZYRTEC-D ALLERGY AND CONGESTION [Concomitant]
     Active Substance: CETIRIZINE HYDROCHLORIDE\PSEUDOEPHEDRINE HYDROCHLORIDE
     Dosage: ZYRTEC-D 5 MG-120MG TAB
  19. ZYRTEC-D ALLERGY AND CONGESTION [Concomitant]
     Active Substance: CETIRIZINE HYDROCHLORIDE\PSEUDOEPHEDRINE HYDROCHLORIDE
  20. MAGNESIUM [Concomitant]
     Active Substance: MAGNESIUM
  21. MAGNESIUM [Concomitant]
     Active Substance: MAGNESIUM
  22. FISH OIL [Concomitant]
     Active Substance: FISH OIL
     Dosage: OMEGA 3-6-9 40-60MG-10 CAPSULE
  23. COENZYME Q10 [Concomitant]
     Active Substance: DIETARY SUPPLEMENT\UBIDECARENONE

REACTIONS (1)
  - Drug ineffective [Unknown]
